FAERS Safety Report 6832069-9 (Version None)
Quarter: 2010Q3

REPORT INFORMATION
  Report Type: 
  Country: None (occurrence: None)
  Receive Date: 20100712
  Receipt Date: 20100701
  Transmission Date: 20110219
  Serious: Yes (Hospitalization)
  Sender: FDA-Public Use
  Company Number: DE-ROCHE-713538

PATIENT
  Sex: Female

DRUGS (1)
  1. TRASTUZUMAB [Suspect]
     Dosage: FREQUENCY REPORTED AS CONTINUED FOR ALL THREE WEEKS
     Route: 042

REACTIONS (1)
  - METASTASES TO CENTRAL NERVOUS SYSTEM [None]
